FAERS Safety Report 9605526 (Version 1)
Quarter: 2013Q4

REPORT INFORMATION
  Report Type: Spontaneous
  Country: GB (occurrence: GB)
  Receive Date: 20131008
  Receipt Date: 20131008
  Transmission Date: 20140711
  Serious: Yes (Hospitalization, Other)
  Sender: FDA-Public Use
  Company Number: GB-TEVA-436581ISR

PATIENT
  Age: 34 Year
  Sex: Male
  Weight: 63 kg

DRUGS (4)
  1. VINCRISTINE [Suspect]
     Indication: EWING^S SARCOMA
     Route: 042
  2. MEPACT [Suspect]
     Indication: EWING^S SARCOMA
     Route: 065
     Dates: start: 20130213
  3. DACTINOMYCIN [Suspect]
     Indication: EWING^S SARCOMA
     Route: 042
  4. IFOSFAMIDE [Suspect]
     Indication: EWING^S SARCOMA
     Route: 042

REACTIONS (7)
  - Syncope [Recovered/Resolved]
  - Presyncope [Recovered/Resolved]
  - Chills [Recovered/Resolved]
  - Off label use [Unknown]
  - Dizziness [Unknown]
  - Syncope [Unknown]
  - Nausea [Unknown]
